FAERS Safety Report 8063447-0 (Version None)
Quarter: 2012Q1

REPORT INFORMATION
  Report Type: 
  Country: None (occurrence: None)
  Receive Date: 20120123
  Receipt Date: 20120113
  Transmission Date: 20120608
  Serious: Yes (Hospitalization, Other)
  Sender: FDA-Public Use
  Company Number: PHFR2011GB007347

PATIENT
  Sex: Male

DRUGS (1)
  1. CLOZARIL [Suspect]
     Indication: SCHIZOPHRENIA, PARANOID TYPE
     Dosage: 300 MG, DAILY
     Route: 048
     Dates: start: 20030114, end: 20111221

REACTIONS (9)
  - NEUTROPENIA [None]
  - THOUGHT BLOCKING [None]
  - VIRAL INFECTION [None]
  - PSYCHOTIC DISORDER [None]
  - MENTAL DISORDER [None]
  - LOWER RESPIRATORY TRACT INFECTION [None]
  - FEAR [None]
  - DISTRACTIBILITY [None]
  - HALLUCINATION, AUDITORY [None]
